FAERS Safety Report 9232131 (Version 1)
Quarter: 2013Q2

REPORT INFORMATION
  Report Type: Spontaneous
  Country: US (occurrence: US)
  Receive Date: 20130415
  Receipt Date: 20130415
  Transmission Date: 20140414
  Serious: Yes (Other)
  Sender: FDA-Public Use
  Company Number: US-PFIZER INC-2013112937

PATIENT
  Sex: Male

DRUGS (3)
  1. ARGATROBAN [Suspect]
     Indication: HEPARIN-INDUCED THROMBOCYTOPENIA TEST POSITIVE
     Dosage: UNK
     Route: 042
     Dates: start: 20130329, end: 20130405
  2. HEPARIN SODIUM [Suspect]
     Dosage: UNK
     Dates: start: 20130405
  3. WARFARIN [Concomitant]
     Dosage: UNK
     Dates: start: 20130405

REACTIONS (1)
  - International normalised ratio increased [Not Recovered/Not Resolved]
